FAERS Safety Report 15459016 (Version 2)
Quarter: 2018Q4

REPORT INFORMATION
  Report Type: Report from Study
  Country: CO (occurrence: CO)
  Receive Date: 20181003
  Receipt Date: 20181012
  Transmission Date: 20190204
  Serious: Yes (Other)
  Sender: FDA-Public Use
  Company Number: PHHY2018CO108917

PATIENT
  Sex: Female
  Weight: 62 kg

DRUGS (2)
  1. TAMOXIFEN [Concomitant]
     Active Substance: TAMOXIFEN
     Indication: BREAST CANCER
     Dosage: 20 MG, ONE EVERY 24 HOURS (STARTED 10 YEARS AGO)
     Route: 048
  2. SANDOSTATIN LAR DEPOT [Suspect]
     Active Substance: OCTREOTIDE ACETATE
     Indication: NEUROENDOCRINE TUMOUR
     Dosage: 20 MG, QMO
     Route: 030
     Dates: start: 201604

REACTIONS (4)
  - Thyroid disorder [Unknown]
  - Choking sensation [Recovering/Resolving]
  - Diabetes mellitus [Unknown]
  - Asphyxia [Recovering/Resolving]
